FAERS Safety Report 7456732-4 (Version None)
Quarter: 2011Q2

REPORT INFORMATION
  Report Type: 
  Country: None (occurrence: None)
  Receive Date: 20110503
  Receipt Date: 20110426
  Transmission Date: 20111010
  Serious: Yes (Other)
  Sender: FDA-Public Use
  Company Number: US-RB-026562-11

PATIENT
  Age: 53 Year
  Sex: Female

DRUGS (1)
  1. NALOXONE HYDROCHLORIDE AND BUPRENORPHINE HYDROCHLORIDE [Suspect]
     Indication: PRODUCT USED FOR UNKNOWN INDICATION
     Dosage: DOSAGE INFORMATION UNKNOWN
     Route: 065

REACTIONS (3)
  - MUSCLE SPASMS [None]
  - CONVULSION [None]
  - HYPERHIDROSIS [None]
